FAERS Safety Report 18142009 (Version 1)
Quarter: 2020Q3

REPORT INFORMATION
  Report Type: Report from Study
  Country: US (occurrence: US)
  Receive Date: 20200813
  Receipt Date: 20200813
  Transmission Date: 20201103
  Serious: Yes (Death, Hospitalization)
  Sender: FDA-Public Use
  Company Number: US-ACTELION-A-NJ2020-206371

PATIENT
  Age: 78 Year
  Sex: Male
  Weight: 99.77 kg

DRUGS (2)
  1. ADEMPAS [Concomitant]
     Active Substance: RIOCIGUAT
     Dosage: 1 MG, TID
     Route: 048
  2. OPSUMIT [Suspect]
     Active Substance: MACITENTAN
     Indication: PULMONARY HYPERTENSION
     Dosage: 10 MG, QD
     Route: 048

REACTIONS (6)
  - Gastrooesophageal reflux disease [Unknown]
  - Death [Fatal]
  - Asthenia [Unknown]
  - Hypotension [Unknown]
  - Dysphagia [Unknown]
  - Eating disorder [Unknown]

NARRATIVE: CASE EVENT DATE: 20200726
